APPROVED DRUG PRODUCT: CARBAMAZEPINE
Active Ingredient: CARBAMAZEPINE
Strength: 200MG
Dosage Form/Route: TABLET;ORAL
Application: A075948 | Product #001 | TE Code: AB
Applicant: APOTEX INC
Approved: Feb 27, 2002 | RLD: No | RS: No | Type: RX